FAERS Safety Report 24575411 (Version 1)
Quarter: 2024Q4

REPORT INFORMATION
  Report Type: Spontaneous
  Country: US (occurrence: US)
  Receive Date: 20241104
  Receipt Date: 20241104
  Transmission Date: 20250114
  Serious: No
  Sender: PAREXEL
  Company Number: US-SCPHARMACEUTICALS-2024-SCPH-US000511

PATIENT

DRUGS (1)
  1. FUROSCIX [Suspect]
     Active Substance: FUROSEMIDE
     Indication: Hypervolaemia
     Dosage: 80 MG
     Route: 058
     Dates: start: 20240817, end: 20240817

REACTIONS (5)
  - Infusion site haemorrhage [Recovering/Resolving]
  - Infusion site laceration [Recovering/Resolving]
  - Infusion site pain [Recovering/Resolving]
  - Infusion site irritation [Recovering/Resolving]
  - Infusion site bruising [Recovering/Resolving]

NARRATIVE: CASE EVENT DATE: 20240817
